FAERS Safety Report 24420777 (Version 1)
Quarter: 2024Q4

REPORT INFORMATION
  Report Type: Other
  Country: GB (occurrence: GB)
  Receive Date: 20241010
  Receipt Date: 20241010
  Transmission Date: 20250115
  Serious: Yes (Other)
  Sender: IPCA
  Company Number: None

PATIENT

DRUGS (1)
  1. ALLOPURINOL [Suspect]
     Active Substance: ALLOPURINOL
     Indication: Adverse drug reaction
     Dosage: 100 MILLIGRAM, QD
     Route: 065
     Dates: end: 20240927

REACTIONS (1)
  - Hepatic pain [Recovering/Resolving]
